FAERS Safety Report 8758531 (Version 1)
Quarter: 2012Q4

REPORT INFORMATION
  Report Type: Spontaneous
  Country: US (occurrence: None)
  Receive Date: 20120828
  Receipt Date: 20120828
  Transmission Date: 20130627
  Serious: Yes (Hospitalization)
  Sender: FDA-Public Use
  Company Number: None

PATIENT
  Age: 40 Year
  Sex: Male
  Weight: 110.22 kg

DRUGS (2)
  1. CUBICIN [Suspect]
     Indication: JOINT INFECTION
     Route: 041
     Dates: start: 20110929, end: 20111001
  2. CUBICIN [Suspect]
     Indication: CENTRAL NERVOUS SYSTEM DISORDER
     Route: 041
     Dates: start: 20110929, end: 20111001

REACTIONS (5)
  - Vomiting [None]
  - Myalgia [None]
  - Gait disturbance [None]
  - Night sweats [None]
  - Muscle twitching [None]
